FAERS Safety Report 22167064 (Version 1)
Quarter: 2023Q2

REPORT INFORMATION
  Report Type: Spontaneous
  Country: US (occurrence: None)
  Receive Date: 20230402
  Receipt Date: 20230402
  Transmission Date: 20230721
  Serious: Yes (Other)
  Sender: FDA-Public Use
  Company Number: None

PATIENT
  Age: 67 Year
  Sex: Female
  Weight: 90 kg

DRUGS (1)
  1. CYCLOSPORINE [Suspect]
     Active Substance: CYCLOSPORINE
     Indication: Dry eye
     Dosage: OTHER QUANTITY : 1 DROP(S);?FREQUENCY : TWICE A DAY;?
     Route: 047
     Dates: start: 20230208, end: 20230208

REACTIONS (6)
  - Instillation site irritation [None]
  - Instillation site erythema [None]
  - Vision blurred [None]
  - Eye swelling [None]
  - Product substitution issue [None]
  - Therapy cessation [None]

NARRATIVE: CASE EVENT DATE: 20230201
